FAERS Safety Report 5464320-4 (Version None)
Quarter: 2007Q3

REPORT INFORMATION
  Report Type: 
  Country: None (occurrence: None)
  Receive Date: 20070921
  Receipt Date: 20070913
  Transmission Date: 20080115
  Serious: Yes (Other)
  Sender: FDA-Public Use
  Company Number: US-ELI_LILLY_AND_COMPANY-US200709002731

PATIENT
  Age: 58 Year
  Sex: Male

DRUGS (2)
  1. HUMULIN N [Suspect]
     Indication: TYPE 1 DIABETES MELLITUS
     Dosage: 24 U, EACH MORNING
  2. HUMULIN N [Suspect]
     Dosage: 20 U, EACH EVENING

REACTIONS (3)
  - BLINDNESS [None]
  - DYSGEUSIA [None]
  - RENAL FAILURE [None]
